FAERS Safety Report 21053834 (Version 1)
Quarter: 2022Q3

REPORT INFORMATION
  Report Type: Spontaneous
  Country: US (occurrence: None)
  Receive Date: 20220707
  Receipt Date: 20220707
  Transmission Date: 20221026
  Serious: Yes (Other)
  Sender: FDA-Public Use
  Company Number: None

PATIENT
  Age: 66 Year
  Sex: Male
  Weight: 87.3 kg

DRUGS (8)
  1. BEBTELOVIMAB [Suspect]
     Active Substance: BEBTELOVIMAB
     Indication: COVID-19
     Dosage: FREQUENCY : ONCE;?
     Route: 040
     Dates: start: 20220629, end: 20220629
  2. ADVAIR HFA [Concomitant]
     Active Substance: FLUTICASONE PROPIONATE\SALMETEROL XINAFOATE
     Dates: start: 20190507
  3. ASCORBIC ACID [Concomitant]
     Active Substance: ASCORBIC ACID
  4. cyanocobalamin tablets [Concomitant]
  5. GABAPENTIN [Concomitant]
     Active Substance: GABAPENTIN
     Dates: start: 20160509
  6. MIRTAZAPINE [Concomitant]
     Active Substance: MIRTAZAPINE
     Dates: start: 20160509
  7. VARENICLINE [Concomitant]
     Active Substance: VARENICLINE
     Dates: start: 20210802
  8. ZOLPIDEM [Concomitant]
     Active Substance: ZOLPIDEM TARTRATE
     Dates: start: 20220322

REACTIONS (6)
  - Ear swelling [None]
  - Dizziness [None]
  - Dizziness [None]
  - Symptom recurrence [None]
  - Adverse drug reaction [None]
  - Hypersensitivity [None]

NARRATIVE: CASE EVENT DATE: 20220630
